FAERS Safety Report 8911036 (Version 1)
Quarter: 2012Q4

REPORT INFORMATION
  Report Type: Spontaneous
  Country: US (occurrence: None)
  Receive Date: 20121114
  Receipt Date: 20121114
  Transmission Date: 20130627
  Serious: Yes (Other)
  Sender: FDA-Public Use
  Company Number: None

PATIENT
  Sex: Female
  Weight: 90.8 kg

DRUGS (2)
  1. HUMULIN R U-500 [Suspect]
     Indication: IDDM
     Dosage: 50 units in am
     Route: 058
     Dates: start: 20120101, end: 20121108
  2. HUMULIN R U-500 [Suspect]
     Indication: IDDM
     Dosage: 14 units in evening
     Route: 058

REACTIONS (4)
  - Metabolic encephalopathy [None]
  - Incorrect dose administered [None]
  - Blood glucose decreased [None]
  - Blood glucose increased [None]
